FAERS Safety Report 10381942 (Version 1)
Quarter: 2014Q3

REPORT INFORMATION
  Report Type: Report from Study
  Country: US (occurrence: US)
  Receive Date: 20140813
  Receipt Date: 20140813
  Transmission Date: 20150326
  Serious: Yes (Disabling, Other)
  Sender: FDA-Public Use
  Company Number: US-SA-2014SA107628

PATIENT
  Age: 51 Year
  Sex: Female

DRUGS (1)
  1. AUBAGIO [Suspect]
     Active Substance: TERIFLUNOMIDE
     Indication: MULTIPLE SCLEROSIS
     Route: 048
     Dates: start: 20140716, end: 20140803

REACTIONS (4)
  - Multiple sclerosis [Recovering/Resolving]
  - Walking aid user [Unknown]
  - Muscle rigidity [Recovering/Resolving]
  - Convulsion [Unknown]

NARRATIVE: CASE EVENT DATE: 20140803
